FAERS Safety Report 8906573 (Version 2)
Quarter: 2012Q4

REPORT INFORMATION
  Report Type: 
  Country: US (occurrence: US)
  Receive Date: 20121114
  Receipt Date: 20121211
  Transmission Date: 20130627
  Serious: Yes (Other)
  Sender: FDA-Public Use
  Company Number: US-PURDUE-USA-2012-0095590

PATIENT
  Sex: Female

DRUGS (4)
  1. INTERMEZZO [Suspect]
     Indication: SLEEP DISORDER
     Dosage: UNK
     Route: 060
     Dates: start: 20121001, end: 20121002
  2. OXYCODONE HYDROCHLORIDE (SIMILAR TO NDA 22-272) [Concomitant]
     Indication: PRODUCT USED FOR UNKNOWN INDICATION
  3. CYMBALTA [Concomitant]
     Indication: PRODUCT USED FOR UNKNOWN INDICATION
  4. LAMICTAL [Concomitant]
     Indication: PRODUCT USED FOR UNKNOWN INDICATION

REACTIONS (3)
  - Sedation [Unknown]
  - Mental impairment [Recovered/Resolved]
  - Confusional state [Recovered/Resolved]
